FAERS Safety Report 4611300-4 (Version None)
Quarter: 2005Q2

REPORT INFORMATION
  Report Type: 
  Country: None (occurrence: None)
  Receive Date: 20050311
  Receipt Date: 20041209
  Transmission Date: 20051028
  Serious: No
  Sender: FDA-Public Use
  Company Number: 2004-BP-13442BP

PATIENT
  Age: 54 Year
  Sex: Female

DRUGS (10)
  1. SPIRIVA [Suspect]
     Indication: CHRONIC OBSTRUCTIVE PULMONARY DISEASE
     Dosage: 18 MCG (18 MCG), IH
     Route: 055
     Dates: start: 20041206, end: 20041208
  2. SPIRIVA [Suspect]
     Indication: CHRONIC OBSTRUCTIVE PULMONARY DISEASE
     Dosage: 18 MCG (18 MCG), IH
     Route: 055
     Dates: start: 20041206, end: 20041208
  3. OXYGEN (OXYGEN) [Concomitant]
  4. WELLBUTRIN [Concomitant]
  5. PAXIL [Concomitant]
  6. REMERON [Concomitant]
  7. ATROVENT [Concomitant]
  8. ALBUTEROL [Concomitant]
  9. IPRATROPIUM + ALBUTEROL [Concomitant]
  10. IMITREX [Concomitant]

REACTIONS (1)
  - DYSPNOEA [None]
